FAERS Safety Report 7307407-3 (Version None)
Quarter: 2011Q1

REPORT INFORMATION
  Report Type: 
  Country: None (occurrence: None)
  Receive Date: 20110210
  Receipt Date: 20110202
  Transmission Date: 20110831
  Serious: Yes (Death)
  Sender: FDA-Public Use
  Company Number: 819487

PATIENT
  Age: 38 Year
  Sex: Female

DRUGS (6)
  1. CYTARABINE [Concomitant]
  2. DEXAMETHASONE [Concomitant]
  3. (ADRIAMYCIN) [Concomitant]
  4. VINCRISTINE SULFATE [Suspect]
     Indication: BURKITT'S LYMPHOMA
     Dosage: INTRATHECAL
     Route: 037
  5. METHOTREXATE [Concomitant]
  6. CYCLOPHOSPHAMIDE [Concomitant]

REACTIONS (16)
  - LETHARGY [None]
  - INCORRECT ROUTE OF DRUG ADMINISTRATION [None]
  - DIPLOPIA [None]
  - PARAESTHESIA [None]
  - PRODUCT QUALITY ISSUE [None]
  - VOMITING [None]
  - PARAESTHESIA ORAL [None]
  - DEAFNESS [None]
  - UNRESPONSIVE TO STIMULI [None]
  - RESPIRATORY FAILURE [None]
  - VIITH NERVE PARALYSIS [None]
  - MEMORY IMPAIRMENT [None]
  - APHAGIA [None]
  - NEUROTOXICITY [None]
  - WRONG DRUG ADMINISTERED [None]
  - NAUSEA [None]
